FAERS Safety Report 20924832 (Version 2)
Quarter: 2022Q3

REPORT INFORMATION
  Report Type: Spontaneous
  Country: US (occurrence: US)
  Receive Date: 20220607
  Receipt Date: 20220921
  Transmission Date: 20221026
  Serious: No
  Sender: FDA-Public Use
  Company Number: US-PHARMAESSENTIA CORPORATION-US-2022-PEC-000507

PATIENT

DRUGS (5)
  1. BESREMI [Suspect]
     Active Substance: ROPEGINTERFERON ALFA-2B-NJFT
     Indication: Essential thrombocythaemia
     Dosage: 100 MICROGRAM; EVERY 14 DAYS
     Route: 058
     Dates: start: 20220210
  2. BESREMI [Suspect]
     Active Substance: ROPEGINTERFERON ALFA-2B-NJFT
     Dosage: 200 MCG, Q2W
     Route: 058
  3. BESREMI [Suspect]
     Active Substance: ROPEGINTERFERON ALFA-2B-NJFT
     Dosage: 100 MCG
     Route: 058
     Dates: start: 20220518
  4. BESREMI [Suspect]
     Active Substance: ROPEGINTERFERON ALFA-2B-NJFT
     Dosage: 250 MCG
     Route: 058
  5. BESREMI [Suspect]
     Active Substance: ROPEGINTERFERON ALFA-2B-NJFT
     Dosage: 100 MCG
     Route: 058

REACTIONS (21)
  - Anxiety [Unknown]
  - Increased appetite [Unknown]
  - Emotional disorder [Recovered/Resolved]
  - Memory impairment [Unknown]
  - Musculoskeletal disorder [Not Recovered/Not Resolved]
  - Unevaluable event [Unknown]
  - Arthropathy [Unknown]
  - Product dose omission issue [Unknown]
  - Off label use [Unknown]
  - COVID-19 [Recovering/Resolving]
  - Red blood cell count increased [Unknown]
  - Platelet count decreased [Unknown]
  - Insomnia [Unknown]
  - Dental discomfort [Unknown]
  - Thirst [Unknown]
  - Headache [Unknown]
  - Fatigue [Not Recovered/Not Resolved]
  - Asthenia [Not Recovered/Not Resolved]
  - Depression [Not Recovered/Not Resolved]
  - Myalgia [Not Recovered/Not Resolved]
  - Nausea [Recovering/Resolving]
